FAERS Safety Report 4640527-0 (Version None)
Quarter: 2005Q2

REPORT INFORMATION
  Report Type: 
  Country: None (occurrence: None)
  Receive Date: 20050328
  Receipt Date: 20050201
  Transmission Date: 20051028
  Serious: No
  Sender: FDA-Public Use
  Company Number: USA050289660

PATIENT
  Age: 7 Year
  Sex: Male
  Weight: 27 kg

DRUGS (4)
  1. STRATTERA [Suspect]
     Indication: ATTENTION DEFICIT/HYPERACTIVITY DISORDER
     Dosage: 60 MG DAY
     Dates: start: 20041201
  2. SINGULAIR (MONTELUKAST) [Concomitant]
  3. LORATADINE [Concomitant]
  4. TOFRANIL [Concomitant]

REACTIONS (1)
  - PRESCRIBED OVERDOSE [None]
